FAERS Safety Report 16799531 (Version 1)
Quarter: 2019Q3

REPORT INFORMATION
  Report Type: Report from Study
  Country: BR (occurrence: BR)
  Receive Date: 20190912
  Receipt Date: 20190912
  Transmission Date: 20191005
  Serious: Yes (Other)
  Sender: FDA-Public Use
  Company Number: PHHY2019BR097929

PATIENT
  Age: 61 Year
  Sex: Female

DRUGS (4)
  1. COSENTYX [Suspect]
     Active Substance: SECUKINUMAB
     Dosage: UNK
     Route: 065
     Dates: start: 20190124
  2. COSENTYX [Suspect]
     Active Substance: SECUKINUMAB
     Dosage: UNK
     Route: 065
     Dates: start: 20190517
  3. COSENTYX [Suspect]
     Active Substance: SECUKINUMAB
     Indication: ANKYLOSING SPONDYLITIS
     Dosage: UNK
     Route: 065
  4. COSENTYX [Suspect]
     Active Substance: SECUKINUMAB
     Dosage: 150 MG, UNK
     Route: 065
     Dates: start: 20190108

REACTIONS (15)
  - Pain [Not Recovered/Not Resolved]
  - Pharyngeal swelling [Recovered/Resolved]
  - Rhinitis [Unknown]
  - Plantar fasciitis [Not Recovered/Not Resolved]
  - Blister [Unknown]
  - Malaise [Unknown]
  - Influenza [Unknown]
  - Pneumonia [Unknown]
  - Pyrexia [Recovered/Resolved]
  - Hypersensitivity [Unknown]
  - Wound [Not Recovered/Not Resolved]
  - Eye disorder [Recovered/Resolved]
  - Mobility decreased [Not Recovered/Not Resolved]
  - Oropharyngeal discomfort [Recovered/Resolved]
  - Memory impairment [Unknown]

NARRATIVE: CASE EVENT DATE: 20190322
